FAERS Safety Report 5756767-3 (Version None)
Quarter: 2008Q2

REPORT INFORMATION
  Report Type: 
  Country: None (occurrence: None)
  Receive Date: 20080603
  Receipt Date: 20080403
  Transmission Date: 20081010
  Serious: Yes (Hospitalization)
  Sender: FDA-Public Use
  Company Number: US-AMGEN-KDL282937

PATIENT
  Sex: Female

DRUGS (7)
  1. ENBREL [Suspect]
     Indication: DRUG USE FOR UNKNOWN INDICATION
     Route: 058
     Dates: start: 20050301
  2. PLAQUENIL [Concomitant]
     Route: 048
     Dates: start: 20000101
  3. COUMADIN [Concomitant]
  4. LOVENOX [Concomitant]
  5. WELLBUTRIN [Concomitant]
  6. PRILOSEC [Concomitant]
  7. CYMBALTA [Concomitant]

REACTIONS (3)
  - NAUSEA [None]
  - PREMATURE LABOUR [None]
  - PREMATURE RUPTURE OF MEMBRANES [None]
